FAERS Safety Report 7156354-9 (Version None)
Quarter: 2010Q4

REPORT INFORMATION
  Report Type: 
  Country: None (occurrence: None)
  Receive Date: 20101214
  Receipt Date: 20101209
  Transmission Date: 20110411
  Serious: Yes (Other)
  Sender: FDA-Public Use
  Company Number: DE-PFIZER INC-2010168682

PATIENT
  Age: 75 Year
  Sex: Male

DRUGS (2)
  1. INSPRA [Suspect]
     Indication: MYOCARDIAL INFARCTION
     Dosage: 25 MG, UNK
  2. TORASEMIDE [Concomitant]

REACTIONS (1)
  - HYPOKALAEMIA [None]
